FAERS Safety Report 7011058-8 (Version None)
Quarter: 2010Q3

REPORT INFORMATION
  Report Type: 
  Country: None (occurrence: None)
  Receive Date: 20100923
  Receipt Date: 20081106
  Transmission Date: 20110219
  Serious: Yes (Death, Hospitalization, Other)
  Sender: FDA-Public Use
  Company Number: US-WYE-H05879208

PATIENT
  Sex: Female
  Weight: 58 kg

DRUGS (6)
  1. RAPAMUNE [Suspect]
     Indication: PROPHYLAXIS AGAINST TRANSPLANT REJECTION
     Dosage: UNKNOWN
     Route: 048
     Dates: start: 20080701, end: 20080806
  2. RAPAMUNE [Suspect]
     Route: 048
     Dates: start: 20080807, end: 20080903
  3. NYSTATIN [Concomitant]
     Indication: CANDIDIASIS
     Route: 050
     Dates: start: 20080830
  4. FLAGYL [Concomitant]
     Dates: start: 20080830
  5. CARDIZEM [Concomitant]
     Indication: ATRIAL FIBRILLATION
     Route: 050
     Dates: start: 20080830
  6. MEPRON [Concomitant]
     Indication: ANTIFUNGAL PROPHYLAXIS
     Route: 050
     Dates: start: 20080830

REACTIONS (9)
  - ACUTE RESPIRATORY DISTRESS SYNDROME [None]
  - ALVEOLITIS [None]
  - BACTERAEMIA [None]
  - INTERSTITIAL LUNG DISEASE [None]
  - LUNG INFECTION PSEUDOMONAL [None]
  - RENAL IMPAIRMENT [None]
  - RESPIRATORY FAILURE [None]
  - SEPSIS [None]
  - URINARY TRACT INFECTION [None]
